FAERS Safety Report 23683781 (Version 2)
Quarter: 2024Q2

REPORT INFORMATION
  Report Type: Spontaneous
  Country: US (occurrence: US)
  Receive Date: 20240328
  Receipt Date: 20240611
  Transmission Date: 20240716
  Serious: Yes (Hospitalization, Other)
  Sender: FDA-Public Use
  Company Number: US-SA-SAC20240325000412

PATIENT
  Age: 48 Year
  Sex: Male

DRUGS (24)
  1. THYMOGLOBULIN [Suspect]
     Active Substance: LAPINE T-LYMPHOCYTE IMMUNE GLOBULIN
     Route: 065
  2. ACETAMINOPHEN [Concomitant]
     Active Substance: ACETAMINOPHEN
     Dosage: 1000 MG, Q6H
  3. ACETAMINOPHEN [Concomitant]
     Active Substance: ACETAMINOPHEN
     Dosage: 650 MG, PRN
  4. DIPHENHYDRAMINE [Concomitant]
     Active Substance: DIPHENHYDRAMINE
     Dosage: 25 MG, 1X
  5. METHYLPREDNISOLONE SODIUM SUCCINATE [Concomitant]
     Active Substance: METHYLPREDNISOLONE SODIUM SUCCINATE
     Dosage: 250 MG, 1X
     Dates: start: 20231227
  6. PREDNISONE [Concomitant]
     Active Substance: PREDNISONE
     Dosage: 50 MG, QD
     Dates: start: 20231229
  7. PREDNISONE [Concomitant]
     Active Substance: PREDNISONE
     Dosage: 25 MG, QD
     Dates: start: 20231230
  8. PREDNISONE [Concomitant]
     Active Substance: PREDNISONE
     Dosage: UNK, QD
  9. ASPIRIN [Concomitant]
     Active Substance: ASPIRIN
     Dosage: 81 MG, QD
  10. BISACODYL [Concomitant]
     Active Substance: BISACODYL
     Dosage: 10 MG, QD
  11. CALCIUM CITRATE;VITAMIN D NOS [Concomitant]
     Dosage: 1 DF, BID
  12. CLOTRIMAZOLE [Concomitant]
     Active Substance: CLOTRIMAZOLE
     Dosage: 10 MG, Q12H
  13. FAMOTIDINE [Concomitant]
     Active Substance: FAMOTIDINE
     Dosage: 20 MG, QD
  14. LABETALOL [Concomitant]
     Active Substance: LABETALOL\LABETALOL HYDROCHLORIDE
     Dosage: 200 MG, BID
  15. MYCOPHENOLATE SODIUM [Concomitant]
     Active Substance: MYCOPHENOLATE SODIUM
     Dosage: 720 MG, BID
  16. POLYETHYLENE GLYCOL 3350 [Concomitant]
     Active Substance: POLYETHYLENE GLYCOL 3350
     Dosage: 17 G, BID
  17. SULFAMETHOXAZOLE\TRIMETHOPRIM [Concomitant]
     Active Substance: SULFAMETHOXAZOLE\TRIMETHOPRIM
     Dosage: 1 DF, QOD
  18. TRIMETHOPRIM [Concomitant]
     Active Substance: TRIMETHOPRIM
  19. TACROLIMUS [Concomitant]
     Active Substance: TACROLIMUS
     Dosage: 0.025 MG/KG, Q12H
  20. VALGANCICLOVIR [Concomitant]
     Active Substance: VALGANCICLOVIR
     Dosage: 450 MG, Q3D
  21. HYDROMORPHONE [Concomitant]
     Active Substance: HYDROMORPHONE
  22. NALOXONE [Concomitant]
     Active Substance: NALOXONE
     Dosage: 0.08 MG, PRN
  23. OXYCODONE [Concomitant]
     Active Substance: OXYCODONE\OXYCODONE HYDROCHLORIDE
     Dosage: 5 MG, PRN
  24. SIMETHICONE (DIMETHICONE) [Concomitant]
     Active Substance: DIMETHICONE
     Dosage: 80 MG, PRN

REACTIONS (6)
  - Haemorrhage [Unknown]
  - Haemoglobin decreased [Unknown]
  - Lymphocyte count decreased [Unknown]
  - Infection [Unknown]
  - Thrombocytopenia [Recovered/Resolved]
  - Post procedural haematoma [Unknown]
